FAERS Safety Report 13362846 (Version 1)
Quarter: 2017Q1

REPORT INFORMATION
  Report Type: Spontaneous
  Country: US (occurrence: US)
  Receive Date: 20170322
  Receipt Date: 20170322
  Transmission Date: 20170429
  Serious: Yes (Hospitalization)
  Sender: FDA-Public Use
  Company Number: None

PATIENT
  Age: 70 Year
  Sex: Female
  Weight: 74.25 kg

DRUGS (10)
  1. TRINTELLIX [Suspect]
     Active Substance: VORTIOXETINE HYDROBROMIDE
     Indication: DEPRESSION
     Dosage: ?          QUANTITY:1 TABLET(S);?
     Route: 048
     Dates: start: 20170303, end: 20170313
  2. LORAZEPAM. [Concomitant]
     Active Substance: LORAZEPAM
  3. CITALOPRAM [Concomitant]
     Active Substance: CITALOPRAM HYDROBROMIDE
  4. BUPROPION. [Concomitant]
     Active Substance: BUPROPION
  5. BIOTIN [Concomitant]
     Active Substance: BIOTIN
  6. BUSPIRONE [Concomitant]
     Active Substance: BUSPIRONE HYDROCHLORIDE
  7. WOMEN^S ULTRA MEGA [Concomitant]
  8. CALCIUM. VITAMIN D3 [Concomitant]
  9. THERA TEARS EYE NUTRITION [Concomitant]
  10. MIRALAX [Concomitant]
     Active Substance: POLYETHYLENE GLYCOL 3350

REACTIONS (3)
  - Headache [None]
  - Hypophagia [None]
  - Nausea [None]

NARRATIVE: CASE EVENT DATE: 20170312
